FAERS Safety Report 9627329 (Version 1)
Quarter: 2013Q4

REPORT INFORMATION
  Report Type: Not Available
  Country: US (occurrence: US)
  Receive Date: 20131016
  Receipt Date: 20131016
  Transmission Date: 20140711
  Serious: No
  Sender: FDA-Public Use
  Company Number: US-LUNDBECK-DKLU1085986

PATIENT
  Age: 5 Year
  Sex: Female

DRUGS (1)
  1. SABRIL (FOR ORAL SOLUTION) [Suspect]
     Indication: PRODUCT USED FOR UNKNOWN INDICATION
     Dates: start: 20121027

REACTIONS (4)
  - Restlessness [Unknown]
  - Hypersomnia [Unknown]
  - Irritability [Unknown]
  - Anxiety [Unknown]
